FAERS Safety Report 4472667-3 (Version None)
Quarter: 2004Q4

REPORT INFORMATION
  Report Type: 
  Country: None (occurrence: None)
  Receive Date: 20041012
  Receipt Date: 20041012
  Transmission Date: 20050328
  Serious: Yes (Other)
  Sender: FDA-Public Use
  Company Number: None

PATIENT
  Age: 62 Year
  Sex: Male
  Weight: 96.6162 kg

DRUGS (1)
  1. FENOFIBRATE [Suspect]
     Dosage: 160 MG PO QD
     Route: 048
     Dates: start: 20040601, end: 20040801

REACTIONS (1)
  - BLOOD CREATINE PHOSPHOKINASE INCREASED [None]
